FAERS Safety Report 5023414-8 (Version None)
Quarter: 2006Q2

REPORT INFORMATION
  Report Type: 
  Country: None (occurrence: None)
  Receive Date: 20060606
  Receipt Date: 20050222
  Transmission Date: 20061013
  Serious: Yes (Hospitalization)
  Sender: FDA-Public Use
  Company Number: A001-320-767

PATIENT
  Age: 82 Year
  Sex: Female
  Weight: 55.7 kg

DRUGS (11)
  1. DONEPEZIL HCL [Suspect]
     Indication: VASCULAR DEMENTIA
     Dosage: 5 MG, 1 IN 1 D; ORAL; 10 MG, 1 IN 1 D; ORAL
     Route: 048
     Dates: start: 20040406, end: 20040526
  2. DONEPEZIL HCL [Suspect]
     Indication: VASCULAR DEMENTIA
     Dosage: 5 MG, 1 IN 1 D; ORAL; 10 MG, 1 IN 1 D; ORAL
     Route: 048
     Dates: start: 20040527
  3. DONEPEZIL HCL [Suspect]
     Indication: VASCULAR DEMENTIA
     Dosage: DOUBLEBLIND, 1 IN 1 D; ORAL
     Route: 048
     Dates: start: 20031020, end: 20040405
  4. PANADEINE (PANADEINE CO) [Concomitant]
  5. DIGOXIN [Concomitant]
  6. METOPROLOL TARTRATE [Concomitant]
  7. WARFARIN SODIUM [Concomitant]
  8. PHYTONADIONE [Concomitant]
  9. SLOW-K [Concomitant]
  10. SPIRONOLACTONE [Concomitant]
  11. ... [Concomitant]

REACTIONS (3)
  - APPENDICEAL ABSCESS [None]
  - APPENDICITIS PERFORATED [None]
  - VENTRICULAR TACHYCARDIA [None]
